FAERS Safety Report 5321065-9 (Version None)
Quarter: 2007Q2

REPORT INFORMATION
  Report Type: 
  Country: None (occurrence: None)
  Receive Date: 20070504
  Receipt Date: 20070426
  Transmission Date: 20071010
  Serious: Yes (Death)
  Sender: FDA-Public Use
  Company Number: 2007SP008008

PATIENT
  Age: 57 Year
  Sex: Male

DRUGS (1)
  1. TEMODAR [Suspect]
     Indication: GLIOBLASTOMA MULTIFORME
     Dosage: 350 MG; QD; PO
     Route: 048

REACTIONS (1)
  - DEATH [None]
